FAERS Safety Report 25787871 (Version 1)
Quarter: 2025Q3

REPORT INFORMATION
  Report Type: Spontaneous
  Country: EU (occurrence: EU)
  Receive Date: 20250910
  Receipt Date: 20250910
  Transmission Date: 20251020
  Serious: Yes (Other)
  Sender: SANDOZ
  Company Number: EU-002147023-NVSC2025DE137394

PATIENT
  Age: 77 Year
  Sex: Male
  Weight: 77 kg

DRUGS (93)
  1. ASPIRIN [Suspect]
     Active Substance: ASPIRIN
     Indication: Product used for unknown indication
     Route: 065
  2. AMBROXOL [Suspect]
     Active Substance: AMBROXOL
     Indication: Product used for unknown indication
     Route: 065
  3. ACETIC ACID [Suspect]
     Active Substance: ACETIC ACID
     Route: 065
  4. ACETIC ACID [Suspect]
     Active Substance: ACETIC ACID
     Indication: Product used for unknown indication
     Route: 065
  5. ACETIC ACID\DELTAMETHRIN [Suspect]
     Active Substance: ACETIC ACID\DELTAMETHRIN
     Route: 065
  6. ACETIC ACID\DELTAMETHRIN [Suspect]
     Active Substance: ACETIC ACID\DELTAMETHRIN
     Indication: Product used for unknown indication
     Route: 065
  7. ASPIRIN CALCIUM [Suspect]
     Active Substance: ASPIRIN CALCIUM
     Indication: Product used for unknown indication
     Route: 065
  8. ASPIRIN CALCIUM [Suspect]
     Active Substance: ASPIRIN CALCIUM
     Route: 065
  9. ASPIRIN CALCIUM [Suspect]
     Active Substance: ASPIRIN CALCIUM
     Route: 065
  10. ASPIRIN CALCIUM [Suspect]
     Active Substance: ASPIRIN CALCIUM
     Route: 065
  11. ASPIRIN CALCIUM [Suspect]
     Active Substance: ASPIRIN CALCIUM
     Route: 065
  12. ALIROCUMAB [Suspect]
     Active Substance: ALIROCUMAB
     Indication: Product used for unknown indication
     Route: 065
  13. ALIROCUMAB [Suspect]
     Active Substance: ALIROCUMAB
     Route: 065
  14. POTASSIUM ASPARTATE [Suspect]
     Active Substance: POTASSIUM ASPARTATE
     Indication: Product used for unknown indication
     Route: 065
  15. CALCIUM [Suspect]
     Active Substance: CALCIUM
     Dosage: 1000 MG, QD UNK UNK, UNKNOWN BID  (STRENGTH: 500) BID (1-0-1),  EFFERVESCENT TABLET
     Route: 065
  16. CALCIUM [Suspect]
     Active Substance: CALCIUM
     Indication: Product used for unknown indication
     Route: 065
  17. CALCIUM CARBONATE [Suspect]
     Active Substance: CALCIUM CARBONATE
     Route: 065
  18. CALCIUM CARBONATE [Suspect]
     Active Substance: CALCIUM CARBONATE
     Indication: Product used for unknown indication
     Route: 065
  19. CALCIUM PANTOTHENATE [Suspect]
     Active Substance: CALCIUM PANTOTHENATE
     Indication: Product used for unknown indication
     Route: 065
  20. COLESEVELAM [Suspect]
     Active Substance: COLESEVELAM
     Indication: Product used for unknown indication
     Route: 065
  21. COLESEVELAM [Suspect]
     Active Substance: COLESEVELAM
     Route: 065
  22. ERGOCALCIFEROL [Suspect]
     Active Substance: ERGOCALCIFEROL
     Dosage: 2000 IU (2000 INTERNATIONAL UNIT, WEEKLY  (1/W))
     Route: 065
  23. ERGOCALCIFEROL [Suspect]
     Active Substance: ERGOCALCIFEROL
     Dosage: 20000 IU, QW
     Route: 065
  24. ERGOCALCIFEROL [Suspect]
     Active Substance: ERGOCALCIFEROL
     Indication: Product used for unknown indication
     Route: 065
  25. ERGOCALCIFEROL [Suspect]
     Active Substance: ERGOCALCIFEROL
     Route: 065
  26. EVOLOCUMAB [Suspect]
     Active Substance: EVOLOCUMAB
     Dosage: 1 DOSAGE FORM QW (1 DOSAGE FORM, QW,  ROUTE: UNKNOWN)
     Route: 065
  27. EVOLOCUMAB [Suspect]
     Active Substance: EVOLOCUMAB
     Route: 065
  28. EVOLOCUMAB [Suspect]
     Active Substance: EVOLOCUMAB
     Indication: Product used for unknown indication
     Route: 065
  29. FLUTICASONE [Suspect]
     Active Substance: FLUTICASONE
     Indication: Dysphonia
     Route: 065
  30. GINKGO [Suspect]
     Active Substance: GINKGO
     Indication: Product used for unknown indication
     Dosage: 4000 MG, QD (1000 MG, BID (INTERVAL: 1  DAY) (UNK, STRENGTH: 500); UNKNOWN)
     Route: 065
  31. CALCIUM CARBONATE [Suspect]
     Active Substance: CALCIUM CARBONATE
     Route: 065
  32. CALCIUM CARBONATE [Suspect]
     Active Substance: CALCIUM CARBONATE
     Indication: Product used for unknown indication
     Route: 065
  33. MOMETASONE [Suspect]
     Active Substance: MOMETASONE
     Indication: Product used for unknown indication
     Dosage: 2 DOSAGE FORM (2 DOSAGE FORM, Q12H(2  PUFFS BID))
     Route: 065
  34. MAGNESIUM GLUCONATE [Suspect]
     Active Substance: MAGNESIUM GLUCONATE
     Indication: Product used for unknown indication
     Route: 065
  35. MAGNESIUM GLUCONATE [Suspect]
     Active Substance: MAGNESIUM GLUCONATE
     Route: 065
  36. MAGNESIUM OROTATE [Suspect]
     Active Substance: MAGNESIUM OROTATE
     Indication: Product used for unknown indication
     Route: 065
  37. MAGNESIUM OROTATE [Suspect]
     Active Substance: MAGNESIUM OROTATE
     Indication: Product used for unknown indication
     Route: 065
  38. MAGNESIUM OROTATE [Suspect]
     Active Substance: MAGNESIUM OROTATE
     Indication: Product used for unknown indication
     Route: 065
  39. MOMETASONE FUROATE [Suspect]
     Active Substance: MOMETASONE FUROATE
     Indication: Product used for unknown indication
     Dosage: 2 DOSAGE FORM, QD ((2 DF, QD,(2 DOSAGE  FORM, DAILY(1 IN 0.5 DAY))))
     Route: 065
  40. MOMETASONE FUROATE [Suspect]
     Active Substance: MOMETASONE FUROATE
     Dosage: 4 DOSAGE FORM, QD ((2 DOSAGE FORM, BID  (2 PUFF(S), BID 1-0-1))
     Route: 065
  41. MOMETASONE FUROATE [Suspect]
     Active Substance: MOMETASONE FUROATE
     Dosage: 0.5 DAY (UNK, BID 2 PUFF(S), BID (2 PUFFS  (1-0-1)))
     Route: 065
  42. MOMETASONE FUROATE [Suspect]
     Active Substance: MOMETASONE FUROATE
     Route: 065
  43. MOMETASONE FUROATE [Suspect]
     Active Substance: MOMETASONE FUROATE
     Route: 065
  44. PANTOTHENIC ACID [Suspect]
     Active Substance: PANTOTHENIC ACID
     Indication: Product used for unknown indication
     Route: 065
  45. PANTOTHENIC ACID [Suspect]
     Active Substance: PANTOTHENIC ACID
     Route: 065
  46. DIETARY SUPPLEMENT [Suspect]
     Active Substance: DIETARY SUPPLEMENT
     Indication: Product used for unknown indication
     Route: 065
  47. RIVAROXABAN [Suspect]
     Active Substance: RIVAROXABAN
     Indication: Product used for unknown indication
     Route: 065
  48. RIVAROXABAN [Suspect]
     Active Substance: RIVAROXABAN
     Route: 065
  49. ROSUVASTATIN CALCIUM [Suspect]
     Active Substance: ROSUVASTATIN CALCIUM
     Indication: Product used for unknown indication
     Route: 065
  50. ROSUVASTATIN CALCIUM [Suspect]
     Active Substance: ROSUVASTATIN CALCIUM
     Indication: Product used for unknown indication
     Route: 065
  51. ROSUVASTATIN CALCIUM [Suspect]
     Active Substance: ROSUVASTATIN CALCIUM
     Route: 065
  52. HERBALS\PHENYL SALICYLATE [Suspect]
     Active Substance: HERBALS\PHENYL SALICYLATE
     Indication: Product used for unknown indication
     Dosage: 10 DRP, QD
     Route: 065
  53. HERBALS\PHENYL SALICYLATE [Suspect]
     Active Substance: HERBALS\PHENYL SALICYLATE
     Dosage: UNK UNK, QD
     Route: 065
  54. SOAP [Suspect]
     Active Substance: SOAP
     Indication: Asthma
     Dosage: 10 DRP, QD (10 GTT DROPS, QD))
     Route: 065
  55. SOAP [Suspect]
     Active Substance: SOAP
     Indication: Cough
     Dosage: UNK (UNK, QD)
     Route: 065
  56. SOAP [Suspect]
     Active Substance: SOAP
     Indication: Pneumothorax
     Route: 065
  57. SOAP [Suspect]
     Active Substance: SOAP
     Indication: Nasopharyngitis
     Route: 065
  58. SOAP [Suspect]
     Active Substance: SOAP
     Indication: Product used for unknown indication
     Route: 065
  59. SOAP [Suspect]
     Active Substance: SOAP
     Indication: Bronchitis
     Route: 065
  60. SOAP [Suspect]
     Active Substance: SOAP
     Indication: Dysphonia
  61. SOAP [Suspect]
     Active Substance: SOAP
     Indication: Dyspnoea
  62. SOAP [Suspect]
     Active Substance: SOAP
     Indication: Product used for unknown indication
  63. SOAP [Suspect]
     Active Substance: SOAP
     Indication: Secretion discharge
  64. TAMSULOSIN [Suspect]
     Active Substance: TAMSULOSIN
     Indication: Product used for unknown indication
     Route: 065
  65. TAMSULOSIN HYDROCHLORIDE [Suspect]
     Active Substance: TAMSULOSIN HYDROCHLORIDE
     Indication: Product used for unknown indication
     Route: 065
  66. TAMSULOSIN HYDROCHLORIDE [Suspect]
     Active Substance: TAMSULOSIN HYDROCHLORIDE
     Route: 065
  67. GINKGO [Suspect]
     Active Substance: GINKGO
     Indication: Product used for unknown indication
     Route: 065
  68. TOCOPHEROL [Suspect]
     Active Substance: TOCOPHEROL
     Dosage: 2000 IU
     Route: 065
  69. TOCOPHEROL [Suspect]
     Active Substance: TOCOPHEROL
     Indication: Product used for unknown indication
     Dosage: 2000 IU, QW (20000 IU, WE (UNK UNK,  UNKNOWN Q2W20000 UNK, QW))
     Route: 065
  70. .ALPHA.-TOCOPHEROL ACETATE [Suspect]
     Active Substance: .ALPHA.-TOCOPHEROL ACETATE
     Dosage: 1 DOSAGE FORM (QW (1 DF, WE (1 DF,  QW)))
     Route: 065
  71. .ALPHA.-TOCOPHEROL ACETATE [Suspect]
     Active Substance: .ALPHA.-TOCOPHEROL ACETATE
     Indication: Product used for unknown indication
     Dosage: 2000 IU QW (WE (2000 IU, QW))
     Route: 065
  72. VITAMIN D [Suspect]
     Active Substance: VITAMIN D NOS
     Dosage: 2000 IU, QW (20000 IU, ONCE WEEKLY  (20000 INTERNATIONAL UNIT, WEEKLY (1/W)))
     Route: 065
  73. VITAMIN D [Suspect]
     Active Substance: VITAMIN D NOS
     Indication: Product used for unknown indication
     Dosage: UNK (20000 INTERNATIONAL UNIT, WEEKLY (1 /W))
     Route: 065
  74. VITAMIN D [Suspect]
     Active Substance: VITAMIN D NOS
     Indication: Product used for unknown indication
     Dosage: UNK (20000 INTERNATIONAL UNIT, WEEKLY (1 /W))
     Route: 065
  75. VITAMIN E [Suspect]
     Active Substance: .ALPHA.-TOCOPHEROL
     Dosage: 1 DOSAGE FORM
     Route: 065
  76. VITAMIN E [Suspect]
     Active Substance: .ALPHA.-TOCOPHEROL
     Dosage: 2000 IU, QW
     Route: 065
  77. VITAMIN E [Suspect]
     Active Substance: .ALPHA.-TOCOPHEROL
     Dosage: UNK 2000 INTERNATIONAL UNIT, WEEKLY (1/W)
     Route: 065
  78. VITAMIN E [Suspect]
     Active Substance: .ALPHA.-TOCOPHEROL
     Route: 065
  79. VITAMIN E [Suspect]
     Active Substance: .ALPHA.-TOCOPHEROL
     Indication: Product used for unknown indication
     Dosage: UNK, Q2W
     Route: 065
  80. VITAMIN E [Suspect]
     Active Substance: .ALPHA.-TOCOPHEROL
     Indication: Product used for unknown indication
     Dosage: UNK, Q2W
     Route: 065
  81. CALCIUM CARBONATE [Concomitant]
     Active Substance: CALCIUM CARBONATE
     Indication: Product used for unknown indication
     Route: 065
  82. CALCIUM CARBONATE [Concomitant]
     Active Substance: CALCIUM CARBONATE
     Route: 065
  83. CALCIUM CARBONATE [Concomitant]
     Active Substance: CALCIUM CARBONATE
     Route: 065
  84. DICLOFENAC [Concomitant]
     Active Substance: DICLOFENAC
     Indication: Product used for unknown indication
     Route: 065
  85. Magnesium aspartate;Procaine hydrochloride [Concomitant]
     Dosage: 500 MG, QD (500 MG, BID 1-0-1)
     Route: 065
  86. Magnesium aspartate;Procaine hydrochloride [Concomitant]
     Dosage: 500 MG 500 MG, TWICE DAILY (STRENGTH 500)
     Route: 065
  87. Magnesium aspartate;Procaine hydrochloride [Concomitant]
     Indication: Product used for unknown indication
     Route: 065
  88. Magnesiumaspartat [Concomitant]
     Indication: Product used for unknown indication
     Dosage: 1000 MG, QD (1000 MG, BID (INTERVAL: 1  DAY) (UNK, STRENGTH: 500))
     Route: 065
  89. Magnesiumaspartat [Concomitant]
     Dosage: 1000 MG, QD UNK UNK, BID (STRENGTH  500)
     Route: 065
  90. Magnesiumaspartat [Concomitant]
     Route: 065
  91. OLMESARTAN [Concomitant]
     Active Substance: OLMESARTAN
     Dosage: 1000 MG, QD ((500 IU, Q12H))
     Route: 065
  92. OLMESARTAN [Concomitant]
     Active Substance: OLMESARTAN
     Indication: Product used for unknown indication
     Route: 065
  93. VITAMIN D NOS [Concomitant]
     Active Substance: CHOLECALCIFEROL\ERGOCALCIFEROL
     Indication: Product used for unknown indication
     Route: 065

REACTIONS (17)
  - Coronary artery disease [Unknown]
  - Obstructive sleep apnoea syndrome [Unknown]
  - Plantar fasciitis [Unknown]
  - Cardiac disorder [Unknown]
  - Eosinophilia [Unknown]
  - Wheezing [Unknown]
  - Obstructive airways disorder [Unknown]
  - Fractional exhaled nitric oxide increased [Recovered/Resolved]
  - Myoglobin blood increased [Unknown]
  - Nasopharyngitis [Unknown]
  - Chest discomfort [Not Recovered/Not Resolved]
  - Secretion discharge [Unknown]
  - Dyspnoea exertional [Unknown]
  - Dysphonia [Not Recovered/Not Resolved]
  - Cough [Not Recovered/Not Resolved]
  - Dyspnoea [Unknown]
  - Brain natriuretic peptide increased [Unknown]

NARRATIVE: CASE EVENT DATE: 20180101
